FAERS Safety Report 14100145 (Version 3)
Quarter: 2017Q4

REPORT INFORMATION
  Report Type: Spontaneous
  Country: RU (occurrence: RU)
  Receive Date: 20171017
  Receipt Date: 20171121
  Transmission Date: 20180321
  Serious: Yes (Other)
  Sender: FDA-Public Use
  Company Number: RU-AMGEN-RUSSP2017154635

PATIENT
  Age: 60 Year
  Sex: Female

DRUGS (3)
  1. VITAMIN D [Concomitant]
     Active Substance: CHOLECALCIFEROL
     Dosage: UNK, 50,000 IU PER WEEK FOR 4 WEEKS,800 TO 2000 IU/DAY
  2. PROLIA [Suspect]
     Active Substance: DENOSUMAB
     Indication: OSTEOPOROSIS POSTMENOPAUSAL
     Dosage: 60 MG (1ML), Q6MO
     Route: 058
     Dates: start: 20150407
  3. CALCIUM [Concomitant]
     Active Substance: CALCIUM
     Dosage: UNK,1000 TO 200 MG

REACTIONS (1)
  - Radius fracture [Recovered/Resolved]

NARRATIVE: CASE EVENT DATE: 20150614
